FAERS Safety Report 15656422 (Version 2)
Quarter: 2019Q4

REPORT INFORMATION
  Report Type: Report from Study
  Country: JP (occurrence: JP)
  Receive Date: 20181126
  Receipt Date: 20191112
  Transmission Date: 20200122
  Serious: Yes (Death, Hospitalization)
  Sender: FDA-Public Use
  Company Number: JP-EISAI MEDICAL RESEARCH-EC-2018-048146

PATIENT
  Age: 52 Year
  Sex: Female
  Weight: 42 kg

DRUGS (8)
  1. FYCOMPA [Suspect]
     Active Substance: PERAMPANEL
     Indication: PARTIAL SEIZURES
     Route: 048
     Dates: start: 20180417, end: 20180424
  2. FYCOMPA [Suspect]
     Active Substance: PERAMPANEL
     Route: 048
     Dates: start: 20180425, end: 20180430
  3. FYCOMPA [Suspect]
     Active Substance: PERAMPANEL
     Route: 048
     Dates: start: 20180508, end: 20181026
  4. FYCOMPA [Suspect]
     Active Substance: PERAMPANEL
     Route: 048
     Dates: start: 20180501, end: 20180507
  5. TOPINA [Concomitant]
     Active Substance: TOPIRAMATE
  6. LAMICTAL [Concomitant]
     Active Substance: LAMOTRIGINE
  7. MYSTAN [Concomitant]
     Active Substance: CLOBAZAM
  8. KEPPRA [Concomitant]
     Active Substance: LEVETIRACETAM

REACTIONS (2)
  - Anaemia [Not Recovered/Not Resolved]
  - MELAS syndrome [Fatal]

NARRATIVE: CASE EVENT DATE: 20180615
